FAERS Safety Report 6638137 (Version 19)
Quarter: 2013Q4

REPORT INFORMATION
  Report Type: Spontaneous
  Country: US (occurrence: US)
  Receive Date: 20080512
  Receipt Date: 20131209
  Transmission Date: 20140711
  Serious: Yes (Hospitalization, Other)
  Sender: FDA-Public Use
  Company Number: PHEH2008US04337

PATIENT
  Age: 62 Year
  Sex: Female

DRUGS (51)
  1. AREDIA [Suspect]
  2. ZOMETA [Suspect]
  3. FOSAMAX [Suspect]
  4. ACTONEL [Suspect]
  5. BENTYL [Concomitant]
  6. REGLAN                                  /USA/ [Concomitant]
  7. ALLEGRA-D [Concomitant]
  8. NEXIUM [Concomitant]
  9. OXYGEN [Concomitant]
  10. DEXAMETHASONE [Concomitant]
  11. FLEXERIL [Concomitant]
  12. AUGMENTIN                               /SCH/ [Concomitant]
  13. GEMZAR [Concomitant]
  14. NEULASTA [Concomitant]
  15. CISPLATIN [Concomitant]
  16. CIPRO ^MILES^ [Concomitant]
  17. CARBOPLATIN [Concomitant]
  18. CALTRATE [Concomitant]
  19. FLAGYL [Concomitant]
  20. ZETIA [Concomitant]
  21. TRAZODONE [Concomitant]
  22. ARMOUR THYROID [Concomitant]
  23. DUONEB [Concomitant]
  24. ADVAIR [Concomitant]
  25. CEFTIN [Concomitant]
  26. LOVENOX [Concomitant]
  27. COUMADIN [Concomitant]
  28. FOLIC ACID [Concomitant]
  29. SODIUM CHLORIDE [Concomitant]
  30. TESTOSTERONE [Concomitant]
  31. THYROID [Concomitant]
  32. MAGNESIUM [Concomitant]
  33. AMINO ACIDS [Concomitant]
  34. BETAINE HYDROCHLORIDE [Concomitant]
  35. CELEXA [Concomitant]
  36. ARANESP [Concomitant]
     Dates: start: 20080225
  37. ALBUTEROL [Concomitant]
  38. WELLBUTRIN                         /00700502/ [Concomitant]
  39. HUMIBID [Concomitant]
  40. KCL [Concomitant]
  41. ZOCOR ^DIECKMANN^ [Concomitant]
  42. CALCIUM [Concomitant]
  43. LASIX [Concomitant]
  44. SEREVENT [Concomitant]
  45. AEROBID [Concomitant]
  46. COMBIVENT                               /GFR/ [Concomitant]
  47. PERIDEX [Concomitant]
  48. BUSPAR [Concomitant]
  49. ZYRTEC [Concomitant]
     Dosage: 10 MG, QD
  50. LECITHIN [Concomitant]
  51. SINGULAIR [Concomitant]

REACTIONS (111)
  - Osteonecrosis of jaw [Unknown]
  - Injury [Unknown]
  - Disability [Unknown]
  - Pain [Unknown]
  - Anxiety [Unknown]
  - Anhedonia [Unknown]
  - Deep vein thrombosis [Unknown]
  - Atelectasis [Unknown]
  - Small cell lung cancer [Unknown]
  - Metastatic neoplasm [Unknown]
  - Non-small cell lung cancer metastatic [Unknown]
  - Pernicious anaemia [Unknown]
  - Cerebral ischaemia [Unknown]
  - Musculoskeletal pain [Unknown]
  - Dysuria [Unknown]
  - Hyponatraemia [Unknown]
  - Hypokalaemia [Unknown]
  - Thrombocytosis [Unknown]
  - Leukocytosis [Unknown]
  - Arthropathy [Unknown]
  - Exostosis [Unknown]
  - Anaemia [Unknown]
  - Osteoporosis [Unknown]
  - Cervical spinal stenosis [Unknown]
  - Hepatic lesion [Unknown]
  - Interstitial lung disease [Unknown]
  - Bronchitis [Unknown]
  - Pyrexia [Unknown]
  - Kidney infection [Unknown]
  - Osteoarthritis [Unknown]
  - Intervertebral disc degeneration [Unknown]
  - Abdominal pain [Unknown]
  - Neutropenia [Unknown]
  - Hypoaesthesia [Unknown]
  - Paraesthesia [Unknown]
  - Fatigue [Unknown]
  - Chest discomfort [Unknown]
  - Chest pain [Recovered/Resolved]
  - Anal inflammation [Unknown]
  - Oedema mucosal [Unknown]
  - Large intestinal haemorrhage [Unknown]
  - Venous thrombosis [Unknown]
  - Muscular weakness [Unknown]
  - Contusion [Unknown]
  - Lymphadenopathy mediastinal [Unknown]
  - Pulmonary mass [Unknown]
  - Lobar pneumonia [Unknown]
  - Intervertebral disc protrusion [Unknown]
  - Diverticulum [Unknown]
  - Cyst [Unknown]
  - Fibula fracture [Unknown]
  - Ligament sprain [Unknown]
  - Flank pain [Unknown]
  - Cholelithiasis [Unknown]
  - Cholecystitis [Unknown]
  - Arthralgia [Unknown]
  - Haemorrhoids [Unknown]
  - Rectal haemorrhage [Unknown]
  - Constipation [Unknown]
  - Large intestine polyp [Unknown]
  - Neck pain [Unknown]
  - Pulmonary fibrosis [Unknown]
  - Depression [Unknown]
  - Hyperlipidaemia [Unknown]
  - Vulvovaginal dryness [Unknown]
  - Sleep apnoea syndrome [Unknown]
  - Pulmonary hypertension [Unknown]
  - Vitamin B12 deficiency [Unknown]
  - Osteopenia [Unknown]
  - Blood glucose increased [Unknown]
  - Hilar lymphadenopathy [Unknown]
  - Paranasal sinus discomfort [Unknown]
  - Bronchopulmonary aspergillosis [Unknown]
  - Pleural effusion [Unknown]
  - Urinary tract infection [Unknown]
  - Intervertebral disc space narrowing [Unknown]
  - Acute stress disorder [Unknown]
  - Respiratory disorder [Unknown]
  - Venous occlusion [Unknown]
  - International normalised ratio increased [Unknown]
  - Atrioventricular block first degree [Unknown]
  - Osteomyelitis [Unknown]
  - Dermal cyst [Unknown]
  - Emphysema [Unknown]
  - Local swelling [Unknown]
  - Wheezing [Unknown]
  - Cough [Unknown]
  - Second primary malignancy [Unknown]
  - Thyroid disorder [Unknown]
  - Visual acuity reduced [Not Recovered/Not Resolved]
  - Arteriosclerosis [Unknown]
  - Spinal osteoarthritis [Unknown]
  - Left ventricular dysfunction [Unknown]
  - Cardiac aneurysm [Unknown]
  - Laceration [Unknown]
  - Palpitations [Unknown]
  - Asthenia [Unknown]
  - Gastritis [Unknown]
  - Dyspnoea [Unknown]
  - Pain in extremity [Unknown]
  - Ear infection [Unknown]
  - Vascular calcification [Unknown]
  - Alopecia [Unknown]
  - Thrombophlebitis [Unknown]
  - Urinary retention [Unknown]
  - Sinus tachycardia [Unknown]
  - Ventricular hypokinesia [Unknown]
  - Bronchopleural fistula [Unknown]
  - Metastases to central nervous system [Unknown]
  - Abdominal distension [Unknown]
  - Tachycardia [Unknown]
